FAERS Safety Report 5193187-7 (Version None)
Quarter: 2006Q4

REPORT INFORMATION
  Report Type: 
  Country: None (occurrence: None)
  Receive Date: 20061221
  Receipt Date: 20061212
  Transmission Date: 20070319
  Serious: Yes (Hospitalization, Other)
  Sender: FDA-Public Use
  Company Number: 2006US002045

PATIENT
  Age: 56 Year
  Sex: Female

DRUGS (10)
  1. AMBISOME [Suspect]
     Indication: SYSTEMIC MYCOSIS
     Dosage: 125 MG, IV DRIP
     Route: 041
     Dates: start: 20060802, end: 20060824
  2. TRIFLUID (GLUCOSE, CALCIUM CHLORIDE DIHYDRATE, ZINC SULFATE, MAGNESIUM [Concomitant]
  3. NEOLAMIN MULTI V (VITAMINS NOS) [Concomitant]
  4. PN TWIN (AMINO ACIDS NOS, ELECTROLYTES NOS, CARBOHYDRATES NOS) [Concomitant]
  5. HUMULIN R [Concomitant]
  6. VORICONAZOLE (VORICONAZOLE) [Concomitant]
  7. POTASSIUM CHLORIDE [Concomitant]
  8. FUNGUARD (MICAFUNGIN SODIUM) [Concomitant]
  9. RED CELLS MAP (RED BLOOD CELLS, CONCENTRATED) [Concomitant]
  10. DIPYRIDAMOLE [Concomitant]

REACTIONS (10)
  - ARRHYTHMIA [None]
  - ASTHENIA [None]
  - BLOOD BETA-D-GLUCAN INCREASED [None]
  - BODY TEMPERATURE DECREASED [None]
  - DIABETIC KETOACIDOTIC HYPERGLYCAEMIC COMA [None]
  - EXTRASYSTOLES [None]
  - GLUCOSE TOLERANCE IMPAIRED [None]
  - HYPERGLYCAEMIA [None]
  - HYPOKALAEMIA [None]
  - PALPITATIONS [None]
